FAERS Safety Report 8331481-9 (Version None)
Quarter: 2012Q2

REPORT INFORMATION
  Report Type: 
  Country: None (occurrence: None)
  Receive Date: 20120502
  Receipt Date: 20120418
  Transmission Date: 20120825
  Serious: Yes (Hospitalization)
  Sender: FDA-Public Use
  Company Number: US-AMGEN-USASP2012024576

PATIENT
  Age: 53 Year
  Sex: Male

DRUGS (1)
  1. ENBREL [Suspect]
     Indication: PSORIATIC ARTHROPATHY
     Dosage: 50 MG, QWK
     Dates: start: 20110503, end: 20120103

REACTIONS (4)
  - JOINT SWELLING [None]
  - APPENDICITIS PERFORATED [None]
  - SEPSIS [None]
  - ABDOMINAL WOUND DEHISCENCE [None]
